FAERS Safety Report 10168460 (Version 2)
Quarter: 2014Q2

REPORT INFORMATION
  Report Type: Report from Study
  Country: US (occurrence: US)
  Receive Date: 20140513
  Receipt Date: 20140513
  Transmission Date: 20141212
  Serious: No
  Sender: FDA-Public Use
  Company Number: US-ALEXION-A201001907

PATIENT
  Sex: Female

DRUGS (1)
  1. SOLIRIS [Suspect]
     Indication: PAROXYSMAL NOCTURNAL HAEMOGLOBINURIA
     Dosage: UNK
     Route: 042

REACTIONS (6)
  - Fatigue [Unknown]
  - Abdominal pain [Unknown]
  - Dysphagia [Unknown]
  - Haemoglobinuria [Unknown]
  - Quality of life decreased [Unknown]
  - Dyspnoea [None]
